FAERS Safety Report 11833576 (Version 1)
Quarter: 2015Q4

REPORT INFORMATION
  Report Type: Spontaneous
  Country: US (occurrence: US)
  Receive Date: 20151214
  Receipt Date: 20151214
  Transmission Date: 20160305
  Serious: No
  Sender: FDA-Public Use
  Company Number: US-PERRIGO-15US011405

PATIENT
  Age: 67 Year
  Sex: Female
  Weight: 58.96 kg

DRUGS (1)
  1. MINOXIDIL. [Suspect]
     Active Substance: MINOXIDIL
     Indication: ALOPECIA
     Dosage: 1 ML, BID
     Route: 061
     Dates: start: 201502, end: 20151017

REACTIONS (2)
  - Application site irritation [Recovered/Resolved]
  - Application site papules [Recovered/Resolved]

NARRATIVE: CASE EVENT DATE: 201509
